FAERS Safety Report 7777209-2 (Version None)
Quarter: 2011Q3

REPORT INFORMATION
  Report Type: 
  Country: None (occurrence: None)
  Receive Date: 20110926
  Receipt Date: 20110913
  Transmission Date: 20111222
  Serious: Yes (Life-Threatening)
  Sender: FDA-Public Use
  Company Number: GB-JNJFOC-20110905764

PATIENT
  Age: 57 Year
  Sex: Female

DRUGS (2)
  1. AMOXICILLIN [Concomitant]
     Indication: UPPER RESPIRATORY TRACT INFECTION
     Route: 048
     Dates: start: 20110830, end: 20110831
  2. PSEUDOEPHEDRINE HCL [Suspect]
     Indication: UPPER RESPIRATORY TRACT INFECTION
     Route: 048
     Dates: start: 20110830, end: 20110831

REACTIONS (10)
  - LIP SWELLING [None]
  - DYSPNOEA [None]
  - EYE SWELLING [None]
  - SWELLING FACE [None]
  - PRURITUS [None]
  - FLUSHING [None]
  - CHEST PAIN [None]
  - THROAT TIGHTNESS [None]
  - WHEEZING [None]
  - PARAESTHESIA [None]
